FAERS Safety Report 9758443 (Version 1)
Quarter: 2013Q4

REPORT INFORMATION
  Report Type: Spontaneous
  Country: US (occurrence: None)
  Receive Date: 20131213
  Receipt Date: 20131213
  Transmission Date: 20140711
  Serious: Yes (Hospitalization)
  Sender: FDA-Public Use
  Company Number: None

PATIENT
  Age: 39 Year
  Sex: Female
  Weight: 111 kg

DRUGS (3)
  1. SPRINTEC [Suspect]
     Indication: UTERINE LEIOMYOMA
     Route: 048
     Dates: start: 20131126, end: 20131210
  2. CLARITIN [Concomitant]
  3. FEROUS GLUCONATE [Concomitant]

REACTIONS (1)
  - Deep vein thrombosis [None]
